FAERS Safety Report 5221296-2 (Version None)
Quarter: 2007Q1

REPORT INFORMATION
  Report Type: 
  Country: None (occurrence: None)
  Receive Date: 20070126
  Receipt Date: 20070115
  Transmission Date: 20070707
  Serious: Yes (Life-Threatening, Other)
  Sender: FDA-Public Use
  Company Number: FR-PFIZER INC-2006147434

PATIENT
  Sex: Male
  Weight: 103 kg

DRUGS (7)
  1. LYRICA [Suspect]
     Indication: NEURALGIA
     Route: 048
     Dates: start: 20061001, end: 20061105
  2. NEXIUM [Concomitant]
     Route: 048
  3. LEVOTHYROXINE SODIUM [Concomitant]
     Route: 048
     Dates: start: 20060903
  4. BUSPAR [Concomitant]
     Route: 048
     Dates: start: 20060828, end: 20070104
  5. ALFACALCIDOL [Concomitant]
     Route: 048
     Dates: start: 20060903, end: 20061220
  6. MORPHINE [Concomitant]
     Route: 048
     Dates: start: 20060901
  7. OFLOCET [Concomitant]
     Indication: URINARY TRACT INFECTION
     Route: 048
     Dates: start: 20061022, end: 20061106

REACTIONS (2)
  - ANURIA [None]
  - RENAL FAILURE ACUTE [None]
